FAERS Safety Report 7080461-2 (Version None)
Quarter: 2010Q4

REPORT INFORMATION
  Report Type: 
  Country: None (occurrence: None)
  Receive Date: 20101103
  Receipt Date: 20101026
  Transmission Date: 20110411
  Serious: Yes (Other)
  Sender: FDA-Public Use
  Company Number: IT-BAYER-201043899GPV

PATIENT
  Age: 38 Year
  Sex: Male

DRUGS (2)
  1. INTERFERON BETA-1B [Suspect]
     Indication: MULTIPLE SCLEROSIS
     Route: 058
     Dates: start: 20060401, end: 20070901
  2. MITOXANTRONE [Concomitant]
     Indication: IMMUNOSUPPRESSION

REACTIONS (6)
  - AGGRESSION [None]
  - ANXIETY [None]
  - DELUSION [None]
  - DEPRESSIVE DELUSION [None]
  - HALLUCINATION, AUDITORY [None]
  - PSYCHOTIC DISORDER [None]
